FAERS Safety Report 8780524 (Version 1)
Quarter: 2012Q4

REPORT INFORMATION
  Report Type: Spontaneous
  Country: None (occurrence: None)
  Receive Date: 20120829
  Receipt Date: 20120829
  Transmission Date: 20130627
  Serious: Yes (Death, Other)
  Sender: FDA-Public Use
  Company Number: AUR-APL-2012-03540

PATIENT
  Sex: Male

DRUGS (3)
  1. FLUOXETINE [Suspect]
     Route: 048
  2. DEPAKOTE [Suspect]
     Route: 048
  3. SEROQUEL [Suspect]

REACTIONS (2)
  - Chest pain [None]
  - Sudden cardiac death [None]
